FAERS Safety Report 7072959-8 (Version None)
Quarter: 2010Q4

REPORT INFORMATION
  Report Type: 
  Country: None (occurrence: None)
  Receive Date: 20101029
  Receipt Date: 20101020
  Transmission Date: 20110411
  Serious: Yes (Hospitalization)
  Sender: FDA-Public Use
  Company Number: CA-JNJFOC-20101006021

PATIENT
  Sex: Male
  Weight: 77 kg

DRUGS (3)
  1. REMICADE [Suspect]
     Indication: ANKYLOSING SPONDYLITIS
     Route: 042
  2. SULFASALAZINE [Concomitant]
  3. CELEBREX [Concomitant]

REACTIONS (3)
  - CERVICAL VERTEBRAL FRACTURE [None]
  - CLAVICLE FRACTURE [None]
  - FALL [None]
